FAERS Safety Report 8969748 (Version 1)
Quarter: 2012Q4

REPORT INFORMATION
  Report Type: 
  Country: US (occurrence: US)
  Receive Date: 20121218
  Receipt Date: 20121218
  Transmission Date: 20130627
  Serious: No
  Sender: FDA-Public Use
  Company Number: US-BRISTOL-MYERS SQUIBB COMPANY-16236812

PATIENT
  Age: 28 Year
  Sex: Male

DRUGS (3)
  1. ABILIFY [Suspect]
     Dates: start: 201111
  2. ADVIL [Concomitant]
  3. REMERON [Concomitant]

REACTIONS (4)
  - Muscle rigidity [Recovering/Resolving]
  - Hypertension [Unknown]
  - Vision blurred [Unknown]
  - Hyperhidrosis [Unknown]
